FAERS Safety Report 4478275-2 (Version None)
Quarter: 2004Q4

REPORT INFORMATION
  Report Type: 
  Country: None (occurrence: None)
  Receive Date: 20041018
  Receipt Date: 20041018
  Transmission Date: 20050328
  Serious: Yes (Hospitalization)
  Sender: FDA-Public Use
  Company Number: None

PATIENT
  Age: 38 Year
  Sex: Male

DRUGS (6)
  1. PREDNISONE [Suspect]
     Indication: HEPATITIS
     Dosage: 60MG QD
     Dates: start: 20040730
  2. PREDNISONE [Suspect]
     Indication: PANCREATITIS
     Dosage: 60MG QD
     Dates: start: 20040730
  3. PENTOXIFYLLINE [Concomitant]
  4. LORAZEPAM [Concomitant]
  5. CITALOPRAM [Concomitant]
  6. OMEPRAZOLE [Concomitant]

REACTIONS (4)
  - CANDIDIASIS [None]
  - SYSTEMIC CANDIDA [None]
  - URINARY TRACT DISORDER [None]
  - VISUAL DISTURBANCE [None]
